FAERS Safety Report 6435479-7 (Version None)
Quarter: 2009Q4

REPORT INFORMATION
  Report Type: 
  Country: None (occurrence: None)
  Receive Date: 20091110
  Receipt Date: 20091029
  Transmission Date: 20100525
  Serious: Yes (Hospitalization)
  Sender: FDA-Public Use
  Company Number: US-ELI_LILLY_AND_COMPANY-US200911001764

PATIENT
  Sex: Female

DRUGS (3)
  1. FORTEO [Suspect]
     Dosage: UNK, UNKNOWN
     Dates: start: 20090701
  2. COUMADIN [Concomitant]
     Dosage: UNK, UNKNOWN
  3. OXYGEN [Concomitant]
     Indication: PULMONARY FIBROSIS
     Dosage: UNK, UNKNOWN

REACTIONS (1)
  - CARDIAC DISORDER [None]
